FAERS Safety Report 5427602-8 (Version None)
Quarter: 2007Q3

REPORT INFORMATION
  Report Type: 
  Country: None (occurrence: None)
  Receive Date: 20070828
  Receipt Date: 20070821
  Transmission Date: 20080115
  Serious: Yes (Other)
  Sender: FDA-Public Use
  Company Number: GB-AVENTIS-200717424GDDC

PATIENT
  Age: 71 Year
  Sex: Male
  Weight: 76 kg

DRUGS (3)
  1. LANTUS [Suspect]
     Route: 058
     Dates: start: 20070620
  2. ASPIRIN [Concomitant]
  3. LYRICA [Concomitant]

REACTIONS (2)
  - DIPLOPIA [None]
  - LOSS OF CONSCIOUSNESS [None]
